FAERS Safety Report 13672483 (Version 1)
Quarter: 2017Q2

REPORT INFORMATION
  Report Type: Spontaneous
  Country: DE (occurrence: DE)
  Receive Date: 20170620
  Receipt Date: 20170620
  Transmission Date: 20170830
  Serious: Yes (Other)
  Sender: FDA-Public Use
  Company Number: PHHY2017DE085763

PATIENT
  Age: 19 Year
  Sex: Female

DRUGS (11)
  1. GEMCITABINE [Suspect]
     Active Substance: GEMCITABINE\GEMCITABINE HYDROCHLORIDE
     Indication: PRODUCT USED FOR UNKNOWN INDICATION
     Route: 065
  2. OXALIPLATIN. [Suspect]
     Active Substance: OXALIPLATIN
     Indication: HEPATOCELLULAR CARCINOMA
     Route: 065
  3. LACTULOSE. [Suspect]
     Active Substance: LACTULOSE
     Indication: HYPERAMMONAEMIA
     Route: 065
  4. SORAFENIB [Suspect]
     Active Substance: SORAFENIB
     Indication: HEPATOCELLULAR CARCINOMA
     Route: 065
  5. ERLOTINIB [Suspect]
     Active Substance: ERLOTINIB
     Indication: HEPATOCELLULAR CARCINOMA
     Route: 065
  6. SODIUM PHENYLBUTYRATE. [Concomitant]
     Active Substance: SODIUM PHENYLBUTYRATE
     Indication: HYPERAMMONAEMIA
     Dosage: 50 MG/KG, UNK
     Route: 048
  7. BEVACIZUMAB [Suspect]
     Active Substance: BEVACIZUMAB
     Indication: HEPATOCELLULAR CARCINOMA
     Route: 065
  8. RIFAXIMIN [Suspect]
     Active Substance: RIFAXIMIN
     Indication: HYPERAMMONAEMIA
     Route: 065
  9. DOXORUBICIN [Suspect]
     Active Substance: DOXORUBICIN
     Indication: HEPATOCELLULAR CARCINOMA
     Route: 065
  10. PLATINUM [Suspect]
     Active Substance: PLATINUM
     Indication: HEPATOCELLULAR CARCINOMA
     Route: 065
  11. SODIUM PHENYLBUTYRATE. [Concomitant]
     Active Substance: SODIUM PHENYLBUTYRATE
     Dosage: 180 MG/KG, UNK
     Route: 048

REACTIONS (5)
  - Hypersensitivity [Unknown]
  - Metastatic neoplasm [Unknown]
  - Diarrhoea [Recovered/Resolved]
  - Flatulence [Unknown]
  - Impaired quality of life [Recovering/Resolving]
